FAERS Safety Report 15761457 (Version 1)
Quarter: 2018Q4

REPORT INFORMATION
  Report Type: Spontaneous
  Country: IL (occurrence: IL)
  Receive Date: 20181226
  Receipt Date: 20181226
  Transmission Date: 20190205
  Serious: Yes (Life-Threatening, Hospitalization)
  Sender: FDA-Public Use
  Company Number: IL-MYLANLABS-2018M1093903

PATIENT
  Age: 66 Year
  Sex: Male

DRUGS (1)
  1. LITHIUM. [Suspect]
     Active Substance: LITHIUM
     Indication: BIPOLAR DISORDER
     Dosage: FOR 25 YEARS
     Route: 065

REACTIONS (5)
  - Toxicity to various agents [Recovering/Resolving]
  - Nephrogenic diabetes insipidus [Recovering/Resolving]
  - Drug interaction [Recovering/Resolving]
  - Respiratory failure [Recovering/Resolving]
  - Depressed level of consciousness [Recovering/Resolving]
